FAERS Safety Report 25498348 (Version 1)
Quarter: 2025Q3

REPORT INFORMATION
  Report Type: Report from Study
  Country: US (occurrence: US)
  Receive Date: 20250701
  Receipt Date: 20250701
  Transmission Date: 20251021
  Serious: Yes (Other)
  Sender: GALDERMA
  Company Number: US-GALDERMA-US2025010631

PATIENT

DRUGS (1)
  1. NEMOLIZUMAB [Suspect]
     Active Substance: NEMOLIZUMAB
     Indication: Neurodermatitis
     Route: 058
     Dates: start: 20250505, end: 20250505

REACTIONS (6)
  - Neuromyopathy [Unknown]
  - Swelling [Recovering/Resolving]
  - Erythema [Recovering/Resolving]
  - Skin warm [Unknown]
  - Postoperative wound infection [Unknown]
  - Post procedural inflammation [Unknown]

NARRATIVE: CASE EVENT DATE: 20250101
